FAERS Safety Report 20343309 (Version 1)
Quarter: 2022Q1

REPORT INFORMATION
  Report Type: Spontaneous
  Country: US (occurrence: US)
  Receive Date: 20220117
  Receipt Date: 20220117
  Transmission Date: 20220423
  Serious: Yes (Hospitalization)
  Sender: FDA-Public Use
  Company Number: US-BIOVITRUM-2022US00474

PATIENT
  Sex: Male

DRUGS (10)
  1. SYNAGIS [Suspect]
     Active Substance: PALIVIZUMAB
     Indication: Autonomic neuropathy
     Route: 030
     Dates: start: 202101
  2. SYNAGIS [Suspect]
     Active Substance: PALIVIZUMAB
     Indication: Quadriplegia
  3. SYNAGIS [Suspect]
     Active Substance: PALIVIZUMAB
     Indication: Pseudomonas infection
  4. SYNAGIS [Suspect]
     Active Substance: PALIVIZUMAB
     Indication: Chronic obstructive pulmonary disease
  5. SYNAGIS [Suspect]
     Active Substance: PALIVIZUMAB
     Indication: Dependence on respirator
  6. SYNAGIS [Suspect]
     Active Substance: PALIVIZUMAB
     Indication: Dependence on respirator
  7. SYNAGIS [Suspect]
     Active Substance: PALIVIZUMAB
     Indication: Muscle disorder
  8. SYNAGIS [Suspect]
     Active Substance: PALIVIZUMAB
     Indication: Dysphagia
  9. SYNAGIS [Suspect]
     Active Substance: PALIVIZUMAB
     Indication: Cerebral ischaemia
  10. SYNAGIS [Suspect]
     Active Substance: PALIVIZUMAB
     Indication: Spinal cord injury

REACTIONS (1)
  - Respiratory syncytial virus infection [Unknown]
